FAERS Safety Report 11404712 (Version 1)
Quarter: 2015Q3

REPORT INFORMATION
  Report Type: Spontaneous
  Country: IT (occurrence: IT)
  Receive Date: 20150821
  Receipt Date: 20150821
  Transmission Date: 20151125
  Serious: Yes (Hospitalization)
  Sender: FDA-Public Use
  Company Number: IT-SA-2015SA125062

PATIENT
  Age: 59 Year
  Sex: Female

DRUGS (7)
  1. PLAVIX [Suspect]
     Active Substance: CLOPIDOGREL BISULFATE
     Indication: ISCHAEMIC HEART DISEASE PROPHYLAXIS
     Dosage: DOSE:1 UNIT(S)
     Route: 048
     Dates: start: 20150101, end: 20150525
  2. PANTORC [Concomitant]
     Active Substance: PANTOPRAZOLE SODIUM
     Dosage: STRENGTH: 40MG DOSE:1 UNIT(S)
     Route: 048
  3. SELOKEN [Concomitant]
     Active Substance: METOPROLOL
     Dosage: STRENGTH: 100MG
     Route: 048
  4. NOVONORM [Concomitant]
     Active Substance: REPAGLINIDE
     Dosage: STRENGTH: 1MG DOSE:3 UNIT(S)
     Route: 048
  5. CARDIOASPIRIN [Suspect]
     Active Substance: ASPIRIN
     Indication: ISCHAEMIC HEART DISEASE PROPHYLAXIS
     Route: 048
     Dates: start: 20150101, end: 20150525
  6. TAVOR [Concomitant]
     Active Substance: LORAZEPAM
     Dosage: STRENGTH: 2.5MG DOSE:1 UNIT(S)
     Route: 048
  7. RAMIPRIL. [Concomitant]
     Active Substance: RAMIPRIL
     Route: 048

REACTIONS (2)
  - Haematuria [Unknown]
  - Strangury [Unknown]

NARRATIVE: CASE EVENT DATE: 20150525
